FAERS Safety Report 7577166-8 (Version None)
Quarter: 2011Q2

REPORT INFORMATION
  Report Type: 
  Country: None (occurrence: None)
  Receive Date: 20110621
  Receipt Date: 20110606
  Transmission Date: 20111010
  Serious: Yes (Other)
  Sender: FDA-Public Use
  Company Number: AUR-APL-2011-02899

PATIENT
  Age: 49 Year
  Sex: Female

DRUGS (1)
  1. VALACYCLOVIR [Suspect]
     Indication: HERPES ZOSTER
     Dosage: 3000 MG (1000 MG. 3 IN 1 D), UNKNOWN

REACTIONS (13)
  - CONFUSIONAL STATE [None]
  - INCOHERENT [None]
  - BLOOD CREATINE INCREASED [None]
  - NEUROTOXICITY [None]
  - BLOOD UREA INCREASED [None]
  - HEART RATE INCREASED [None]
  - DELIRIUM [None]
  - HYPOREFLEXIA [None]
  - AGITATION [None]
  - BLOOD PRESSURE INCREASED [None]
  - DISORIENTATION [None]
  - HALLUCINATION [None]
  - DRUG LEVEL INCREASED [None]
